FAERS Safety Report 19929223 (Version 1)
Quarter: 2021Q4

REPORT INFORMATION
  Report Type: Spontaneous
  Country: US (occurrence: US)
  Receive Date: 20211007
  Receipt Date: 20211007
  Transmission Date: 20220304
  Serious: No
  Sender: FDA-Public Use
  Company Number: 2021A748630

PATIENT
  Sex: Female
  Weight: 83.9 kg

DRUGS (1)
  1. FARXIGA [Suspect]
     Active Substance: DAPAGLIFLOZIN PROPANEDIOL
     Indication: Type 2 diabetes mellitus
     Dosage: DAILY
     Route: 048
     Dates: start: 20210729

REACTIONS (2)
  - Genital rash [Not Recovered/Not Resolved]
  - Genital infection female [Not Recovered/Not Resolved]

NARRATIVE: CASE EVENT DATE: 20210101
